FAERS Safety Report 8115682-0 (Version None)
Quarter: 2012Q1

REPORT INFORMATION
  Report Type: 
  Country: None (occurrence: None)
  Receive Date: 20120117
  Receipt Date: 20120104
  Transmission Date: 20120608
  Serious: Yes (Other)
  Sender: FDA-Public Use
  Company Number: AEUSA201100274

PATIENT
  Age: 38 Year
  Sex: Female
  Weight: 64.8644 kg

DRUGS (9)
  1. ZYRTEC [Concomitant]
  2. QVAR 40 [Concomitant]
  3. NEURONTIN [Concomitant]
  4. GAMUNEX [Suspect]
     Indication: SELECTIVE IGG SUBCLASS DEFICIENCY
     Dosage: 15 GM;QW;SC
     Route: 058
     Dates: start: 20110527, end: 20110901
  5. CELEXA [Concomitant]
  6. FLONASE [Concomitant]
  7. OCEAN NASAL [Concomitant]
  8. VITAMIN B12 /00260201/ [Concomitant]
  9. XOPENEX [Concomitant]

REACTIONS (6)
  - DRY MOUTH [None]
  - SINUSITIS [None]
  - ASTHMA [None]
  - RHINITIS ALLERGIC [None]
  - MENINGITIS ASEPTIC [None]
  - CANDIDIASIS [None]
